FAERS Safety Report 16741453 (Version 1)
Quarter: 2019Q4

REPORT INFORMATION
  Report Type: Spontaneous
  Country: US (occurrence: US)
  Receive Date: 20190826
  Receipt Date: 20190826
  Transmission Date: 20200122
  Serious: Yes (Death)
  Sender: FDA-Public Use
  Company Number: None

PATIENT
  Age: 89 Year
  Sex: Male

DRUGS (7)
  1. CAPECITABINE. [Suspect]
     Active Substance: CAPECITABINE
     Indication: NEOPLASM MALIGNANT
     Route: 048
     Dates: start: 20190618
  2. FLUOROMETHOLONE. [Concomitant]
     Active Substance: FLUOROMETHOLONE
  3. LOPERAMIDE [Concomitant]
     Active Substance: LOPERAMIDE
  4. MULTIVITAMIN [Concomitant]
     Active Substance: VITAMINS
  5. RANITIDINE. [Concomitant]
     Active Substance: RANITIDINE
  6. ATENOLOL. [Concomitant]
     Active Substance: ATENOLOL
  7. FERROUS SULFATE. [Concomitant]
     Active Substance: FERROUS SULFATE

REACTIONS (1)
  - Death [None]

NARRATIVE: CASE EVENT DATE: 20190806
